FAERS Safety Report 25802029 (Version 1)
Quarter: 2025Q3

REPORT INFORMATION
  Report Type: Spontaneous
  Country: EU (occurrence: EU)
  Receive Date: 20250915
  Receipt Date: 20250915
  Transmission Date: 20251021
  Serious: Yes (Hospitalization, Other)
  Sender: AUROBINDO
  Company Number: EU-Accord-501473

PATIENT
  Age: 2 Year
  Sex: Male
  Weight: 14.3 kg

DRUGS (10)
  1. VORICONAZOLE [Interacting]
     Active Substance: VORICONAZOLE
     Indication: Fungal endocarditis
     Dosage: 8 MILLIGRAM/KILOGRAM, TWO TIMES A DAY (MAINTENANCE DOSE)
     Route: 042
     Dates: start: 2023
  2. VORICONAZOLE [Interacting]
     Active Substance: VORICONAZOLE
     Dosage: 9 MILLIGRAM/KILOGRAM, TWO TIMES A DAY (LOADING DOSE)
     Route: 042
     Dates: start: 2023
  3. RIFAMPIN [Interacting]
     Active Substance: RIFAMPIN
     Indication: Staphylococcal infection
     Dosage: 20 MILLIGRAM/KILOGRAM, ONCE A DAY (9 DAYS)
     Route: 048
     Dates: start: 2023
  4. AMPHOTERICIN B [Suspect]
     Active Substance: AMPHOTERICIN B
     Indication: Fungal endocarditis
     Dosage: 5 MILLIGRAM/KILOGRAM, TWO TIMES A DAY
     Route: 042
     Dates: start: 20230629, end: 20230830
  5. CLOXACILLIN [Concomitant]
     Active Substance: CLOXACILLIN
     Indication: Fungal endocarditis
     Dosage: 50 MILLIGRAM/KILOGRAM, FOUR TIMES/DAY
     Route: 042
  6. CLOXACILLIN [Concomitant]
     Active Substance: CLOXACILLIN
     Indication: Staphylococcal infection
     Dosage: 50 MILLIGRAM/KILOGRAM, FOUR TIMES/DAY
     Route: 042
     Dates: start: 2023
  7. GENTAMICIN [Concomitant]
     Active Substance: GENTAMICIN
     Indication: Fungal endocarditis
     Dosage: 5 MILLIGRAM/KILOGRAM, ONCE A DAY
     Route: 042
  8. GENTAMICIN [Concomitant]
     Active Substance: GENTAMICIN
     Indication: Staphylococcal infection
     Dosage: 5 MILLIGRAM/KILOGRAM, ONCE A DAY
     Route: 042
     Dates: start: 2023
  9. DAPTOMYCIN [Concomitant]
     Active Substance: DAPTOMYCIN
     Indication: Fungal endocarditis
     Dosage: 12 MILLIGRAM/KILOGRAM, ONCE A DAY
     Route: 042
  10. DAPTOMYCIN [Concomitant]
     Active Substance: DAPTOMYCIN
     Indication: Staphylococcal infection
     Dosage: 12 MILLIGRAM/KILOGRAM, ONCE A DAY
     Route: 042
     Dates: start: 2023

REACTIONS (4)
  - Hypokalaemia [Unknown]
  - Drug level below therapeutic [Unknown]
  - Drug clearance increased [Unknown]
  - Drug interaction [Unknown]
